FAERS Safety Report 8154949-7 (Version None)
Quarter: 2012Q1

REPORT INFORMATION
  Report Type: 
  Country: None (occurrence: None)
  Receive Date: 20120221
  Receipt Date: 20120215
  Transmission Date: 20120608
  Serious: Yes (Hospitalization)
  Sender: FDA-Public Use
  Company Number: PHHY2012IN013162

PATIENT
  Age: 66 Year
  Sex: Female

DRUGS (1)
  1. ZOLEDRONOC ACID [Suspect]
     Indication: OSTEOPOROSIS
     Dosage: 5 MG, ONCE IN A YEAR
     Route: 042
     Dates: start: 20120213

REACTIONS (9)
  - SPEECH DISORDER [None]
  - FEELING COLD [None]
  - BACK PAIN [None]
  - BLOOD PRESSURE INCREASED [None]
  - SYNCOPE [None]
  - ABASIA [None]
  - EYE MOVEMENT DISORDER [None]
  - DIARRHOEA [None]
  - ASTHENIA [None]
